FAERS Safety Report 17090344 (Version 1)
Quarter: 2019Q4

REPORT INFORMATION
  Report Type: Spontaneous
  Country: US (occurrence: US)
  Receive Date: 20191031
  Receipt Date: 20191031
  Transmission Date: 20200122
  Serious: No
  Sender: FDA-Public Use
  Company Number: None

PATIENT
  Sex: Male

DRUGS (6)
  1. AMIKACIN SULFATE 1 GM/4ML FRESENIUS KABI USA [Suspect]
     Active Substance: AMIKACIN SULFATE
     Indication: BACTERIAL INFECTION
     Dosage: ?          OTHER FREQUENCY:Q36HR;?
     Route: 042
     Dates: start: 20190812, end: 20191005
  2. SINGULAIR [Concomitant]
     Active Substance: MONTELUKAST SODIUM
  3. ZYRTEC [Concomitant]
     Active Substance: CETIRIZINE HYDROCHLORIDE
  4. AMLODIPINE [Concomitant]
     Active Substance: AMLODIPINE BESYLATE
  5. CRESTOR [Concomitant]
     Active Substance: ROSUVASTATIN CALCIUM
  6. TYGACIL [Concomitant]
     Active Substance: TIGECYCLINE

REACTIONS (1)
  - Deafness [None]
